FAERS Safety Report 23688607 (Version 1)
Quarter: 2024Q1

REPORT INFORMATION
  Report Type: Spontaneous
  Country: US (occurrence: US)
  Receive Date: 20240329
  Receipt Date: 20240329
  Transmission Date: 20240410
  Serious: No
  Sender: FDA-Public Use
  Company Number: US-VIIV HEALTHCARE LIMITED-US2024030467

PATIENT
  Sex: Male
  Weight: 91.6 kg

DRUGS (3)
  1. DOVATO [Suspect]
     Active Substance: DOLUTEGRAVIR SODIUM\LAMIVUDINE
     Indication: HIV infection
     Dosage: UNK UNK, QD 50-300 MG 30 TAB 3 REFILLS
  2. LEXAPRO [Suspect]
     Active Substance: ESCITALOPRAM OXALATE
     Indication: Product used for unknown indication
     Dosage: 1 DF, QD 20 MG 30 TAB 3 REFILLS
  3. AZELASTINE [Suspect]
     Active Substance: AZELASTINE\AZELASTINE HYDROCHLORIDE
     Indication: Product used for unknown indication
     Dosage: 2 PUFF(S), BID AS NEEDED, 137 MICROGRAM

REACTIONS (3)
  - Seasonal allergy [Unknown]
  - Generalised anxiety disorder [Unknown]
  - Depression [Unknown]
